FAERS Safety Report 12845282 (Version 3)
Quarter: 2016Q4

REPORT INFORMATION
  Report Type: Report from Study
  Country: RS (occurrence: RS)
  Receive Date: 20161013
  Receipt Date: 20161110
  Transmission Date: 20170207
  Serious: Yes (Hospitalization)
  Sender: FDA-Public Use
  Company Number: RS-B.I. PHARMACEUTICALS,INC./RIDGEFIELD-2016-BI-49955BI

PATIENT
  Age: 76 Year
  Sex: Male
  Weight: 82 kg

DRUGS (8)
  1. VALSACOR [Concomitant]
     Active Substance: VALSARTAN
     Indication: HYPERTENSION
     Route: 048
     Dates: start: 2011, end: 20160621
  2. AMINOFILIN R [Concomitant]
     Indication: CHRONIC OBSTRUCTIVE PULMONARY DISEASE
     Route: 048
     Dates: start: 2011
  3. NEVOTENS [Concomitant]
     Indication: HYPERTENSION
     Route: 048
     Dates: start: 2011, end: 20160621
  4. PREXANYL [Concomitant]
     Indication: HYPERTENSION
     Route: 048
     Dates: start: 2011, end: 20160621
  5. BLINDED TIOTROPIUM BROMIDE+OLODATEROL [Suspect]
     Active Substance: OLODATEROL HYDROCHLORIDE\TIOTROPIUM BROMIDE MONOHYDRATE
     Indication: CHRONIC OBSTRUCTIVE PULMONARY DISEASE
     Dosage: FORMULATION: SOLUTION FOR INHALATION; ROUTE: ORAL INHALATION
     Route: 050
     Dates: start: 20160201
  6. NORVASC [Concomitant]
     Active Substance: AMLODIPINE BESYLATE
     Indication: HYPERTENSION
     Route: 048
     Dates: start: 2011, end: 20160621
  7. PULMICORT TURBUHALER [Concomitant]
     Active Substance: BUDESONIDE
     Indication: CHRONIC OBSTRUCTIVE PULMONARY DISEASE
     Route: 055
     Dates: start: 20160201
  8. VENTOLIN [Concomitant]
     Active Substance: ALBUTEROL SULFATE
     Indication: CHRONIC OBSTRUCTIVE PULMONARY DISEASE
     Dosage: DAILY DOSE: 100MCG/DOSE PRN
     Route: 055
     Dates: start: 20160127

REACTIONS (4)
  - Ischaemic stroke [Recovered/Resolved with Sequelae]
  - Lipid metabolism disorder [Not Recovered/Not Resolved]
  - Carotid artery disease [Not Recovered/Not Resolved]
  - Obstructive airways disorder [Recovered/Resolved]

NARRATIVE: CASE EVENT DATE: 20160618
